FAERS Safety Report 7913922-1 (Version None)
Quarter: 2011Q4

REPORT INFORMATION
  Report Type: 
  Country: None (occurrence: None)
  Receive Date: 20111115
  Receipt Date: 20111111
  Transmission Date: 20120403
  Serious: Yes (Other)
  Sender: FDA-Public Use
  Company Number: JP-PFIZER INC-2011263224

PATIENT
  Age: 65 Year
  Sex: Female

DRUGS (3)
  1. LYRICA [Suspect]
     Dosage: 75 MG, 2X/DAY
     Route: 048
     Dates: start: 20111017, end: 20111021
  2. HACHIMIJIO-GAN [Concomitant]
     Dosage: UNK
     Route: 048
  3. LYRICA [Suspect]
     Indication: BACK PAIN
     Dosage: 100 MG DAILY
     Route: 048
     Dates: start: 20110805, end: 20111016

REACTIONS (1)
  - LOSS OF CONSCIOUSNESS [None]
